FAERS Safety Report 21958818 (Version 1)
Quarter: 2023Q1

REPORT INFORMATION
  Report Type: Spontaneous
  Country: US (occurrence: US)
  Receive Date: 20230206
  Receipt Date: 20230206
  Transmission Date: 20230418
  Serious: No
  Sender: FDA-Public Use
  Company Number: US-AERIE-2022-002576

PATIENT
  Age: 77 Year
  Sex: Male

DRUGS (5)
  1. RHOPRESSA [Suspect]
     Active Substance: NETARSUDIL MESYLATE
     Indication: Open angle glaucoma
     Dosage: 1 GTT, OS, BID
     Route: 047
  2. LIFITEGRAST [Concomitant]
     Active Substance: LIFITEGRAST
     Indication: Product used for unknown indication
     Dosage: UNK UNK, OU, BID
     Route: 047
  3. DORZOLAMIDE [Concomitant]
     Active Substance: DORZOLAMIDE
     Indication: Product used for unknown indication
     Dosage: UNK, OU, BID
     Route: 047
  4. LATANOPROST [Concomitant]
     Active Substance: LATANOPROST
     Indication: Product used for unknown indication
     Dosage: UNK, OU, QHS
     Route: 047
  5. NOVOTEARS [Concomitant]
     Indication: Product used for unknown indication
     Dosage: UNK, OU, BID
     Route: 047

REACTIONS (2)
  - Corneal bleeding [Recovered/Resolved]
  - Off label use [Unknown]
